FAERS Safety Report 6522353-0 (Version None)
Quarter: 2009Q4

REPORT INFORMATION
  Report Type: 
  Country: None (occurrence: None)
  Receive Date: 20091230
  Receipt Date: 20091223
  Transmission Date: 20100525
  Serious: Yes (Other)
  Sender: FDA-Public Use
  Company Number: A0836825A

PATIENT
  Age: 76 Year
  Sex: Female

DRUGS (1)
  1. NEOTIGASON [Suspect]
     Indication: PSORIASIS
     Dosage: 10MG UNKNOWN
     Route: 048

REACTIONS (3)
  - SKIN ATROPHY [None]
  - SKIN EXFOLIATION [None]
  - SKIN HAEMORRHAGE [None]
